FAERS Safety Report 11719041 (Version 2)
Quarter: 2015Q4

REPORT INFORMATION
  Report Type: Spontaneous
  Country: CN (occurrence: CN)
  Receive Date: 20151110
  Receipt Date: 20151117
  Transmission Date: 20160304
  Serious: Yes (Other)
  Sender: FDA-Public Use
  Company Number: CN-009507513-1511CHN004236

PATIENT
  Age: 27 Year
  Sex: Female
  Weight: 50 kg

DRUGS (4)
  1. MUCOSOLVAN [Concomitant]
     Active Substance: AMBROXOL HYDROCHLORIDE
     Indication: PNEUMONIA
     Dosage: 30 MG, BID
     Route: 041
     Dates: start: 20150519, end: 20150527
  2. AMOXICILLIN SODIUM (+) CLAVULANATE POTASSIUM [Concomitant]
     Indication: PNEUMONIA
     Dosage: 1.8 G, BID
     Route: 041
     Dates: start: 20150519, end: 20150602
  3. SINGULAIR [Suspect]
     Active Substance: MONTELUKAST SODIUM
     Indication: PNEUMONIA
     Dosage: 10 MG, QD
     Route: 048
     Dates: start: 20150519, end: 20150523
  4. ZITHROMAX [Concomitant]
     Active Substance: AZITHROMYCIN DIHYDRATE
     Indication: PNEUMONIA
     Dosage: 0.5 G, QD
     Route: 041
     Dates: start: 20150519, end: 20150524

REACTIONS (3)
  - Agitation [Recovered/Resolved]
  - Insomnia [Recovered/Resolved]
  - Mania [Recovered/Resolved]

NARRATIVE: CASE EVENT DATE: 20150523
